FAERS Safety Report 14273073 (Version 2)
Quarter: 2018Q3

REPORT INFORMATION
  Report Type: Spontaneous
  Country: US (occurrence: US)
  Receive Date: 20171211
  Receipt Date: 20180709
  Transmission Date: 20181010
  Serious: No
  Sender: FDA-Public Use
  Company Number: US-OTSUKA-2017_019168

PATIENT
  Sex: Female

DRUGS (2)
  1. ABILIFY [Suspect]
     Active Substance: ARIPIPRAZOLE
     Indication: MAJOR DEPRESSION
     Dosage: 2 MG, QD (AUGMENTATION WITH SSRI)
     Route: 065
     Dates: start: 200712
  2. ABILIFY [Suspect]
     Active Substance: ARIPIPRAZOLE
     Indication: ADJUVANT THERAPY
     Dosage: 5 MG, QD
     Route: 065
     Dates: end: 201401

REACTIONS (7)
  - Eating disorder [Recovered/Resolved]
  - Divorced [Unknown]
  - Emotional distress [Unknown]
  - Neuropsychiatric symptoms [Unknown]
  - Economic problem [Unknown]
  - Injury [Unknown]
  - Gambling disorder [Recovered/Resolved]
